FAERS Safety Report 24367592 (Version 1)
Quarter: 2024Q3

REPORT INFORMATION
  Report Type: Spontaneous
  Country: US (occurrence: US)
  Receive Date: 20240926
  Receipt Date: 20240926
  Transmission Date: 20241017
  Serious: No
  Sender: SANDOZ
  Company Number: US-002147023-NVSC2022US185238

PATIENT
  Sex: Female

DRUGS (6)
  1. LETROZOLE [Suspect]
     Active Substance: LETROZOLE
     Indication: Neoplasm malignant
     Dosage: 2.5 MG (USED IN PAST)
     Route: 065
  2. RECLAST [Suspect]
     Active Substance: ZOLEDRONIC ACID
     Indication: Osteoporosis
     Dosage: UNK UNK, Q12MO (ANUALLY)
     Route: 042
     Dates: start: 20220812
  3. CRESTOR [Concomitant]
     Active Substance: ROSUVASTATIN CALCIUM
     Indication: Product used for unknown indication
     Dosage: 20 MG, QD
     Route: 065
  4. XANAX [Concomitant]
     Active Substance: ALPRAZOLAM
     Indication: Anxiety
     Dosage: 0.5 MG, PRN (AS NEEDED)
     Route: 065
  5. ZOLOFT [Concomitant]
     Active Substance: SERTRALINE HYDROCHLORIDE
     Indication: Anxiety
     Dosage: 125 MG, QD (DAILY)
     Route: 065
  6. ZOLOFT [Concomitant]
     Active Substance: SERTRALINE HYDROCHLORIDE
     Indication: Depression

REACTIONS (11)
  - Gait inability [Recovering/Resolving]
  - Erythema [Recovered/Resolved]
  - Drug intolerance [Unknown]
  - Hypokinesia [Unknown]
  - Adverse drug reaction [Unknown]
  - Chills [Recovering/Resolving]
  - Pain [Recovering/Resolving]
  - Vomiting [Recovering/Resolving]
  - Pyrexia [Recovering/Resolving]
  - Dizziness [Not Recovered/Not Resolved]
  - Product dose omission issue [Unknown]
